FAERS Safety Report 8622200 (Version 4)
Quarter: 2012Q4

REPORT INFORMATION
  Report Type: 
  Country: IT (occurrence: IT)
  Receive Date: 20120619
  Receipt Date: 20120830
  Transmission Date: 20130627
  Serious: Yes (Hospitalization, Disabling)
  Sender: FDA-Public Use
  Company Number: IT-BAYER-2012-058229

PATIENT
  Age: 15 Year
  Sex: Female
  Weight: 55 kg

DRUGS (2)
  1. YASMIN [Suspect]
     Indication: OVARIAN CYSTECTOMY
     Dosage: UNK
     Route: 048
     Dates: start: 201101, end: 20110223
  2. YASMIN [Suspect]
     Indication: POLYCYSTIC OVARIES

REACTIONS (13)
  - Pulmonary embolism [Not Recovered/Not Resolved]
  - Musculoskeletal pain [Not Recovered/Not Resolved]
  - Dyspnoea [Not Recovered/Not Resolved]
  - Chest pain [Not Recovered/Not Resolved]
  - Syncope [Not Recovered/Not Resolved]
  - Asthenia [Not Recovered/Not Resolved]
  - Cardiac arrest [Not Recovered/Not Resolved]
  - Cerebral ischaemia [Not Recovered/Not Resolved]
  - Neurogenic bladder [Not Recovered/Not Resolved]
  - Quadriparesis [Not Recovered/Not Resolved]
  - Dysphagia [Not Recovered/Not Resolved]
  - Unevaluable event [Not Recovered/Not Resolved]
  - Apallic syndrome [Not Recovered/Not Resolved]
